FAERS Safety Report 8593848-3 (Version None)
Quarter: 2012Q3

REPORT INFORMATION
  Report Type: 
  Country: None (occurrence: None)
  Receive Date: 20120814
  Receipt Date: 20120730
  Transmission Date: 20120928
  Serious: Yes (Other)
  Sender: FDA-Public Use
  Company Number: GB-WATSON-2012-13873

PATIENT
  Age: 24 Year
  Sex: Female
  Weight: 58.96 kg

DRUGS (2)
  1. OMEPRAZOLE [Concomitant]
     Indication: PRODUCT USED FOR UNKNOWN INDICATION
     Dosage: UNK
     Route: 065
  2. CIPROFLOXACIN HCL [Suspect]
     Indication: PRODUCT USED FOR UNKNOWN INDICATION
     Dosage: UNK
     Route: 065
     Dates: start: 20120718, end: 20120718

REACTIONS (8)
  - ABASIA [None]
  - MYALGIA [None]
  - SUICIDAL IDEATION [None]
  - PAIN IN EXTREMITY [None]
  - CONFUSIONAL STATE [None]
  - ARTHRALGIA [None]
  - EMOTIONAL DISTRESS [None]
  - PANIC DISORDER [None]
